FAERS Safety Report 22347550 (Version 6)
Quarter: 2025Q1

REPORT INFORMATION
  Report Type: Report from Study
  Country: CA (occurrence: CA)
  Receive Date: 20230522
  Receipt Date: 20250121
  Transmission Date: 20250409
  Serious: Yes (Other)
  Sender: TAKEDA
  Company Number: CA-TAKEDA-2022TUS041752

PATIENT
  Sex: Male

DRUGS (9)
  1. VEDOLIZUMAB [Suspect]
     Active Substance: VEDOLIZUMAB
     Indication: Crohn^s disease
  2. VEDOLIZUMAB [Suspect]
     Active Substance: VEDOLIZUMAB
  3. VEDOLIZUMAB [Suspect]
     Active Substance: VEDOLIZUMAB
  4. VEDOLIZUMAB [Suspect]
     Active Substance: VEDOLIZUMAB
  5. VEDOLIZUMAB [Suspect]
     Active Substance: VEDOLIZUMAB
  6. ASACOL [Concomitant]
     Active Substance: MESALAMINE
     Dosage: UNK UNK, QD
     Dates: start: 1994
  7. PREDNISONE [Concomitant]
     Active Substance: PREDNISONE
     Dosage: 7 MILLIGRAM, QD
     Dates: start: 1981
  8. PANTOPRAZOLE [Concomitant]
     Active Substance: PANTOPRAZOLE
     Dosage: 10 MILLIGRAM, QD
  9. PROLIA [Concomitant]
     Active Substance: DENOSUMAB
     Dosage: UNK UNK, Q6MONTHS

REACTIONS (7)
  - Nephrolithiasis [Unknown]
  - Anastomotic ulcer [Unknown]
  - Irritable bowel syndrome [Unknown]
  - Diarrhoea [Unknown]
  - Therapeutic reaction time decreased [Unknown]
  - Abdominal pain [Unknown]
  - Back pain [Unknown]
